FAERS Safety Report 6658176-1 (Version None)
Quarter: 2010Q1

REPORT INFORMATION
  Report Type: 
  Country: None (occurrence: None)
  Receive Date: 20100330
  Receipt Date: 20100324
  Transmission Date: 20100710
  Serious: Yes (Hospitalization)
  Sender: FDA-Public Use
  Company Number: B0642600A

PATIENT
  Sex: Male

DRUGS (6)
  1. CLAMOXYL [Suspect]
     Indication: ENDOCARDITIS
     Route: 065
     Dates: start: 20091101, end: 20091201
  2. KEPPRA [Suspect]
     Indication: EPILEPSY
     Route: 048
     Dates: start: 20091101, end: 20091126
  3. LOVENOX [Concomitant]
     Indication: THROMBOSIS
     Route: 058
     Dates: start: 20090901
  4. DOLIPRANE [Concomitant]
     Indication: PAIN
     Route: 048
  5. IBUPROFENE [Concomitant]
     Route: 048
  6. VASTAREL [Concomitant]
     Indication: VERTIGO
     Route: 048

REACTIONS (2)
  - LEUKOPENIA [None]
  - NEUTROPENIA [None]
